FAERS Safety Report 7432038-4 (Version None)
Quarter: 2011Q2

REPORT INFORMATION
  Report Type: 
  Country: None (occurrence: None)
  Receive Date: 20110422
  Receipt Date: 20110414
  Transmission Date: 20111010
  Serious: Yes (Other)
  Sender: FDA-Public Use
  Company Number: US-SANOFI-AVENTIS-2011SA024780

PATIENT
  Age: 61 Year
  Sex: Female

DRUGS (5)
  1. METFORMIN [Concomitant]
  2. ASPIRIN [Suspect]
     Route: 065
     Dates: start: 20110406
  3. AVAPRO [Concomitant]
  4. ENOXAPARIN SODIUM [Suspect]
     Indication: THROMBOSIS PROPHYLAXIS
     Route: 065
     Dates: start: 20110323, end: 20110405
  5. THYROID TAB [Concomitant]

REACTIONS (2)
  - HYPERKALAEMIA [None]
  - PARALYSIS [None]
